FAERS Safety Report 9121422 (Version 1)
Quarter: 2013Q1

REPORT INFORMATION
  Report Type: Report from Study
  Country: DE (occurrence: DE)
  Receive Date: 20130225
  Receipt Date: 20130225
  Transmission Date: 20140127
  Serious: Yes (Hospitalization)
  Sender: FDA-Public Use
  Company Number: DE-BRISTOL-MYERS SQUIBB COMPANY-17392374

PATIENT
  Age: 55 Year
  Sex: Female
  Weight: 82 kg

DRUGS (3)
  1. ORENCIA [Suspect]
     Indication: RHEUMATOID ARTHRITIS
     Route: 042
     Dates: start: 20120723, end: 20130212
  2. GLUCOCORTICOID [Suspect]
     Indication: RHEUMATOID ARTHRITIS
     Dosage: DOSE INCREASED TO 13MG DUE TO CROHN^S DISEASE
     Route: 048
  3. METHOTREXATE [Suspect]
     Indication: RHEUMATOID ARTHRITIS
     Route: 058

REACTIONS (3)
  - Crohn^s disease [Recovered/Resolved]
  - Clostridium difficile infection [Unknown]
  - Arterial occlusive disease [Not Recovered/Not Resolved]
